FAERS Safety Report 6236252-5 (Version None)
Quarter: 2009Q2

REPORT INFORMATION
  Report Type: 
  Country: None (occurrence: None)
  Receive Date: 20090619
  Receipt Date: 20090611
  Transmission Date: 20091009
  Serious: Yes (Hospitalization, Other)
  Sender: FDA-Public Use
  Company Number: SE-JNJFOC-20090603799

PATIENT
  Age: 16 Year
  Sex: Female

DRUGS (5)
  1. REMICADE [Suspect]
     Route: 042
  2. REMICADE [Suspect]
     Indication: COLITIS ULCERATIVE
     Dosage: INITIATED ^ABOUT 6 MONTHS AGO^  RECEIVED 2 TREATMENTS WITHIN A TIME PERIOD OF 2 WEEKS.
     Route: 042
  3. STEROIDS NOS [Concomitant]
  4. SALAZOPYRIN [Concomitant]
  5. NEXIUM [Concomitant]

REACTIONS (2)
  - DRUG EXPOSURE DURING PREGNANCY [None]
  - LISTERIA SEPSIS [None]
